FAERS Safety Report 11401768 (Version 1)
Quarter: 2015Q3

REPORT INFORMATION
  Report Type: Spontaneous
  Country: GB (occurrence: GB)
  Receive Date: 20150821
  Receipt Date: 20150821
  Transmission Date: 20151125
  Serious: Yes (Other)
  Sender: FDA-Public Use
  Company Number: GB-AUROBINDO-AUR-APL-2015-07255

PATIENT
  Age: 75 Year
  Sex: Female

DRUGS (6)
  1. PREDNISOLONE. [Suspect]
     Active Substance: PREDNISOLONE
     Indication: RHEUMATOID ARTHRITIS
     Dosage: 3 MG, QD, HIGH DOSE STARTED 20 YEARS AGO, CURRENTLY 3MG DAILY
     Route: 065
  2. LISINOPRIL. [Concomitant]
     Active Substance: LISINOPRIL
     Indication: BLOOD PRESSURE MEASUREMENT
     Dosage: 20MG, 10MG AND 5MG DAILY
     Route: 065
     Dates: start: 2014
  3. AMLODIPINE 10 MG [Suspect]
     Active Substance: AMLODIPINE BESYLATE
     Indication: BLOOD PRESSURE MEASUREMENT
     Dosage: 10 MG, QD
     Route: 065
     Dates: start: 2014
  4. ENBREL [Suspect]
     Active Substance: ETANERCEPT
     Indication: RHEUMATOID ARTHRITIS
     Dosage: 50 MG, WEEKLY
     Route: 065
     Dates: start: 201305
  5. SALAZOPYRIN [Suspect]
     Active Substance: SULFASALAZINE
     Indication: RHEUMATOID ARTHRITIS
     Dosage: 500 MG, QD, STARTED 20 YEARS AGO
     Route: 065
     Dates: end: 201505
  6. CALCICHEW D3 [Concomitant]
     Active Substance: CALCIUM\CHOLECALCIFEROL
     Indication: OSTEOPOROSIS
     Dosage: 2 DF, QD
     Route: 065
     Dates: start: 2014

REACTIONS (5)
  - White blood cell count decreased [Unknown]
  - Lower respiratory tract infection [Recovered/Resolved]
  - Blepharitis [Recovered/Resolved]
  - Neutrophil count decreased [Unknown]
  - Influenza [Unknown]

NARRATIVE: CASE EVENT DATE: 201412
